FAERS Safety Report 22065794 (Version 1)
Quarter: 2023Q1

REPORT INFORMATION
  Report Type: Report from Study
  Country: US (occurrence: US)
  Receive Date: 20230306
  Receipt Date: 20230306
  Transmission Date: 20230418
  Serious: Yes (Hospitalization)
  Sender: FDA-Public Use
  Company Number: US-ABBVIE-4328373

PATIENT
  Age: 35 Year
  Sex: Male

DRUGS (1)
  1. SKYRIZI [Suspect]
     Active Substance: RISANKIZUMAB-RZAA
     Indication: Psoriasis
     Dosage: FORM STRENGTH: 150 MILLIGRAM
     Route: 058
     Dates: start: 202301

REACTIONS (7)
  - Multiple fractures [Unknown]
  - Scar [Unknown]
  - Swelling [Unknown]
  - General physical condition abnormal [Unknown]
  - Contusion [Unknown]
  - Blister [Unknown]
  - Infection [Unknown]

NARRATIVE: CASE EVENT DATE: 20230218
